FAERS Safety Report 4706536-8 (Version None)
Quarter: 2005Q2

REPORT INFORMATION
  Report Type: 
  Country: None (occurrence: None)
  Receive Date: 20050629
  Receipt Date: 20050429
  Transmission Date: 20051028
  Serious: No
  Sender: FDA-Public Use
  Company Number: 05P-163-0298931-00

PATIENT
  Age: 58 Year
  Sex: Male
  Weight: 123 kg

DRUGS (9)
  1. HUMIRA [Suspect]
     Indication: RHEUMATOID ARTHRITIS
     Dosage: 40 MG, 1 IN 2 WK, 1 IN 10 D, SUBCUTANEOUS
     Route: 058
     Dates: start: 20050123, end: 20050428
  2. HUMIRA [Suspect]
     Indication: RHEUMATOID ARTHRITIS
     Dosage: 40 MG, 1 IN 2 WK, 1 IN 10 D, SUBCUTANEOUS
     Route: 058
     Dates: start: 20050429
  3. LEVOTHYROXINE SODIUM [Concomitant]
  4. PRINZIDE [Concomitant]
  5. ASPIRIN [Concomitant]
  6. MECLIZINE [Concomitant]
  7. ETODOLAC [Concomitant]
  8. PREDNISONE TAB [Concomitant]
  9. . [Concomitant]

REACTIONS (1)
  - DRUG EFFECT DECREASED [None]
